FAERS Safety Report 24138773 (Version 1)
Quarter: 2024Q3

REPORT INFORMATION
  Report Type: Spontaneous
  Country: US (occurrence: US)
  Receive Date: 20240725
  Receipt Date: 20240725
  Transmission Date: 20241017
  Serious: No
  Sender: ABBVIE
  Company Number: US-ABBVIE-5847268

PATIENT
  Sex: Female

DRUGS (1)
  1. QULIPTA [Suspect]
     Active Substance: ATOGEPANT
     Indication: Migraine
     Route: 048
     Dates: start: 20240708

REACTIONS (4)
  - Hypophagia [Unknown]
  - Nausea [Unknown]
  - Pain [Unknown]
  - Migraine [Unknown]

NARRATIVE: CASE EVENT DATE: 20240701
